FAERS Safety Report 8322814 (Version 8)
Quarter: 2012Q4

REPORT INFORMATION
  Report Type: 
  Country: AU (occurrence: AU)
  Receive Date: 20120105
  Receipt Date: 20120828
  Transmission Date: 20130627
  Serious: Yes (Hospitalization)
  Sender: FDA-Public Use
  Company Number: AU-JNJFOC-20111210196

PATIENT
  Age: 46 None
  Sex: Male

DRUGS (9)
  1. REMICADE [Suspect]
     Indication: CROHN^S DISEASE
     Route: 042
     Dates: start: 20120420
  2. REMICADE [Suspect]
     Indication: CROHN^S DISEASE
     Route: 042
     Dates: start: 20090602
  3. REMICADE [Suspect]
     Indication: CROHN^S DISEASE
     Route: 042
     Dates: start: 20120224
  4. REMICADE [Suspect]
     Indication: CROHN^S DISEASE
     Route: 042
     Dates: start: 20111229
  5. REMICADE [Suspect]
     Indication: CROHN^S DISEASE
     Route: 042
     Dates: start: 20111017
  6. SALAZOPYRIN [Concomitant]
     Route: 065
  7. SALAZOPYRIN [Concomitant]
     Dosage: 3 tabs twice a day
     Route: 065
  8. SALAZOPYRIN [Concomitant]
     Dosage: 2 tablets twice a day
     Route: 065
  9. IMURAN [Concomitant]

REACTIONS (11)
  - Oedema peripheral [Recovering/Resolving]
  - Fistula [Unknown]
  - Cellulitis [Recovering/Resolving]
  - Drug resistance [Unknown]
  - Frequent bowel movements [Recovering/Resolving]
  - Acne [Recovered/Resolved]
  - Skin ulcer [Unknown]
  - Skin mass [Recovering/Resolving]
  - Hypoaesthesia [Not Recovered/Not Resolved]
  - Fatigue [Recovering/Resolving]
  - Arthralgia [Recovered/Resolved]
